FAERS Safety Report 6015246-9 (Version None)
Quarter: 2008Q4

REPORT INFORMATION
  Report Type: 
  Country: None (occurrence: None)
  Receive Date: 20081219
  Receipt Date: 20081219
  Transmission Date: 20090506
  Serious: Yes (Hospitalization)
  Sender: FDA-Public Use
  Company Number: None

PATIENT
  Sex: Female
  Weight: 77.73 kg

DRUGS (3)
  1. CARBOPLATIN [Suspect]
     Dosage: 339 MG
  2. TAXOL [Suspect]
     Dosage: 289 MG
  3. NEULASTA [Suspect]
     Dosage: 6 MG

REACTIONS (9)
  - ANOREXIA [None]
  - ARTERIOSCLEROSIS [None]
  - CLOSTRIDIUM DIFFICILE COLITIS [None]
  - CONFUSIONAL STATE [None]
  - DEEP VEIN THROMBOSIS [None]
  - HYPOALBUMINAEMIA [None]
  - MENTAL STATUS CHANGES [None]
  - THROMBOCYTOPENIA [None]
  - VOMITING [None]
